FAERS Safety Report 15745410 (Version 3)
Quarter: 2019Q1

REPORT INFORMATION
  Report Type: Report from Study
  Country: JP (occurrence: JP)
  Receive Date: 20181220
  Receipt Date: 20190121
  Transmission Date: 20190417
  Serious: Yes (Life-Threatening, Other)
  Sender: FDA-Public Use
  Company Number: JP-ASPEN-GLO2018JP012829

PATIENT
  Age: 2 Year
  Sex: Male

DRUGS (19)
  1. METHYLPREDNISOLONE. [Suspect]
     Active Substance: METHYLPREDNISOLONE
     Indication: ACUTE MYELOID LEUKAEMIA
     Dosage: ORAL CORTICOSTEROID WAS GRADUALLY TAPERED FOR 6 MONTHS
     Route: 048
  2. DEXAMETHASONE. [Suspect]
     Active Substance: DEXAMETHASONE
     Indication: ACUTE MYELOID LEUKAEMIA
     Dosage: 237 MG/M2, HIGH-DOSE
     Route: 048
  3. DEXAMETHASONE. [Suspect]
     Active Substance: DEXAMETHASONE
     Dosage: ORAL CORTICOSTEROID WAS GRADUALLY TAPERED FOR 6 MONTHS
     Route: 048
  4. DEXAMETHASONE. [Suspect]
     Active Substance: DEXAMETHASONE
     Dosage: TO AVOID ^WITHDRAWAL SYNDROME^, A 9-DAY STEROID TAPERING
     Route: 048
  5. BUSULFAN. [Concomitant]
     Active Substance: BUSULFAN
     Indication: ACUTE MYELOID LEUKAEMIA
     Route: 065
  6. FLUDARABINE PHOSPHATE. [Concomitant]
     Active Substance: FLUDARABINE PHOSPHATE
     Indication: ACUTE MYELOID LEUKAEMIA
     Route: 065
  7. METHYLPREDNISOLONE. [Suspect]
     Active Substance: METHYLPREDNISOLONE
     Dosage: TO AVOID ^WITHDRAWAL SYNDROME^, A 9-DAY STEROID TAPERING
     Route: 065
  8. MELPHALAN. [Concomitant]
     Active Substance: MELPHALAN
     Indication: ACUTE MYELOID LEUKAEMIA
     Route: 065
  9. METHOTREXATE. [Concomitant]
     Active Substance: METHOTREXATE
     Indication: PROPHYLAXIS
     Route: 037
  10. METHOTREXATE. [Concomitant]
     Active Substance: METHOTREXATE
     Indication: ACUTE MYELOID LEUKAEMIA
  11. PREDNISONE. [Suspect]
     Active Substance: PREDNISONE
     Dosage: 9781 MG/M2, HIGH-DOSE
     Route: 048
  12. HYDROCORTISONE. [Suspect]
     Active Substance: HYDROCORTISONE
     Indication: PROPHYLAXIS
     Route: 037
  13. PREDNISONE. [Suspect]
     Active Substance: PREDNISONE
     Dosage: TO AVOID ^WITHDRAWAL SYNDROME^, A 9-DAY STEROID TAPERING
     Route: 048
  14. HYDROCORTISONE. [Suspect]
     Active Substance: HYDROCORTISONE
     Indication: ACUTE MYELOID LEUKAEMIA
  15. PREDNISONE. [Suspect]
     Active Substance: PREDNISONE
     Indication: ACUTE MYELOID LEUKAEMIA
     Dosage: ORAL CORTICOSTEROID WAS GRADUALLY TAPERED FOR 6 MONTHS
     Route: 048
  16. METHYLPREDNISOLONE. [Suspect]
     Active Substance: METHYLPREDNISOLONE
     Dosage: 2 DF, TWO COURSES OF METHYL PREDNISONE PULSE
     Route: 048
  17. CYTARABINE. [Concomitant]
     Active Substance: CYTARABINE
     Indication: PROPHYLAXIS
     Route: 037
  18. METHYLPREDNISOLONE. [Suspect]
     Active Substance: METHYLPREDNISOLONE
     Indication: CHRONIC GRAFT VERSUS HOST DISEASE
     Dosage: HIGH-DOSE
     Route: 048
  19. CYTARABINE. [Concomitant]
     Active Substance: CYTARABINE
     Indication: ACUTE MYELOID LEUKAEMIA

REACTIONS (11)
  - Somnolence [Unknown]
  - Intellectual disability [Unknown]
  - Adrenocortical insufficiency acute [Recovering/Resolving]
  - Gastroenteritis viral [Recovering/Resolving]
  - Adrenal insufficiency [Recovering/Resolving]
  - Hypothalamo-pituitary disorder [Recovering/Resolving]
  - Respiratory tract infection [Recovering/Resolving]
  - Epilepsy [Unknown]
  - Hypoglycaemia [Unknown]
  - Nausea [Unknown]
  - Body height below normal [Unknown]
